FAERS Safety Report 9166599 (Version 2)
Quarter: 2013Q1

REPORT INFORMATION
  Report Type: Spontaneous
  Country: US (occurrence: US)
  Receive Date: 20130315
  Receipt Date: 20130329
  Transmission Date: 20140127
  Serious: Yes (Other)
  Sender: FDA-Public Use
  Company Number: US-US-EMD SERONO, INC.-7041273

PATIENT
  Sex: Female

DRUGS (1)
  1. REBIF [Suspect]
     Indication: MULTIPLE SCLEROSIS
     Route: 058
     Dates: start: 20110104, end: 201202

REACTIONS (5)
  - Systemic lupus erythematosus [Not Recovered/Not Resolved]
  - Psoriasis [Recovered/Resolved]
  - Abdominal tenderness [Unknown]
  - Multiple sclerosis relapse [Unknown]
  - Injection site erythema [Not Recovered/Not Resolved]
